FAERS Safety Report 23268993 (Version 2)
Quarter: 2024Q2

REPORT INFORMATION
  Report Type: Spontaneous
  Country: JP (occurrence: JP)
  Receive Date: 20231206
  Receipt Date: 20240403
  Transmission Date: 20240715
  Serious: Yes (Hospitalization, Other)
  Sender: FDA-Public Use
  Company Number: JP-SAKK-2023SA376835AA

PATIENT
  Age: 71 Year
  Sex: Female

DRUGS (9)
  1. KEVZARA [Suspect]
     Active Substance: SARILUMAB
     Indication: Rheumatoid arthritis
     Dosage: UNK
     Route: 058
  2. TACROLIMUS [Concomitant]
     Active Substance: TACROLIMUS
     Indication: Rheumatoid arthritis
     Dosage: 1.5 MG
     Route: 065
  3. TACROLIMUS [Concomitant]
     Active Substance: TACROLIMUS
     Indication: Systemic lupus erythematosus
     Dosage: 3 MG
     Route: 065
  4. TACROLIMUS [Concomitant]
     Active Substance: TACROLIMUS
     Indication: Aplasia pure red cell
  5. PREDNISOLONE [Concomitant]
     Active Substance: PREDNISOLONE
     Indication: Rheumatoid arthritis
     Dosage: 3 MG
     Route: 065
  6. PREDNISOLONE [Concomitant]
     Active Substance: PREDNISOLONE
     Indication: Systemic lupus erythematosus
     Dosage: 10 MG
     Route: 065
  7. PREDNISOLONE [Concomitant]
     Active Substance: PREDNISOLONE
     Indication: Aplasia pure red cell
     Dosage: 40 MG
     Route: 065
  8. PREDNISOLONE [Concomitant]
     Active Substance: PREDNISOLONE
     Dosage: 20 MG
     Route: 065
  9. PREDNISOLONE [Concomitant]
     Active Substance: PREDNISOLONE
     Dosage: DECREASED
     Route: 065

REACTIONS (6)
  - Systemic lupus erythematosus [Recovering/Resolving]
  - Palpitations [Recovering/Resolving]
  - Dyspnoea exertional [Recovering/Resolving]
  - Hypocomplementaemia [Recovering/Resolving]
  - Aplasia pure red cell [Recovering/Resolving]
  - Anaemia [Recovering/Resolving]
